FAERS Safety Report 21570130 (Version 1)
Quarter: 2022Q4

REPORT INFORMATION
  Report Type: Spontaneous
  Country: US (occurrence: US)
  Receive Date: 20221109
  Receipt Date: 20221109
  Transmission Date: 20230112
  Serious: No
  Sender: FDA-Public Use
  Company Number: US-JNJFOC-20221106320

PATIENT
  Age: 69 Year
  Sex: Female
  Weight: 74.910 kg

DRUGS (1)
  1. SPRAVATO [Suspect]
     Active Substance: ESKETAMINE
     Indication: Major depression
     Dates: start: 2020

REACTIONS (2)
  - Irritability [Unknown]
  - Frustration tolerance decreased [Unknown]
